FAERS Safety Report 6288948-7 (Version None)
Quarter: 2009Q3

REPORT INFORMATION
  Report Type: 
  Country: None (occurrence: None)
  Receive Date: 20090729
  Receipt Date: 20090721
  Transmission Date: 20100115
  Serious: Yes (Other)
  Sender: FDA-Public Use
  Company Number: US-SANOFI-SYNTHELABO-A03200903180

PATIENT
  Sex: Female
  Weight: 62.1 kg

DRUGS (5)
  1. DRISDOL [Suspect]
     Indication: VITAMIN D DECREASED
     Route: 048
     Dates: start: 20090319, end: 20090319
  2. DRISDOL [Suspect]
     Indication: BLOOD CALCIUM DECREASED
     Route: 048
     Dates: start: 20090319, end: 20090319
  3. ERYTHROMYCIN [Suspect]
     Indication: ROSACEA
     Dosage: UNK
     Route: 065
     Dates: start: 20090321
  4. MINOCYCLINE HCL [Suspect]
     Indication: ROSACEA
     Dosage: UNK
     Route: 065
     Dates: start: 20090320, end: 20090320
  5. XANAX [Concomitant]
     Indication: DRUG USE FOR UNKNOWN INDICATION
     Dosage: UNK
     Route: 065

REACTIONS (15)
  - ABDOMINAL PAIN [None]
  - APHAGIA [None]
  - BLOOD CALCIUM INCREASED [None]
  - BLOOD SODIUM INCREASED [None]
  - CHEST DISCOMFORT [None]
  - CHOKING SENSATION [None]
  - DIARRHOEA [None]
  - DYSPNOEA [None]
  - EATING DISORDER [None]
  - HYPERSENSITIVITY [None]
  - PANIC ATTACK [None]
  - PHARYNGEAL OEDEMA [None]
  - SKIN DISORDER [None]
  - STEATORRHOEA [None]
  - WEIGHT DECREASED [None]
